FAERS Safety Report 5868255-4 (Version None)
Quarter: 2008Q3

REPORT INFORMATION
  Report Type: 
  Country: None (occurrence: None)
  Receive Date: 20080902
  Receipt Date: 20080822
  Transmission Date: 20090109
  Serious: Yes (Other)
  Sender: FDA-Public Use
  Company Number: FR-PFIZER INC-2008072063

PATIENT
  Age: 74 Year
  Sex: Female

DRUGS (6)
  1. AROMASIN [Suspect]
     Indication: BREAST CANCER
     Dates: start: 20030601, end: 20070601
  2. LOSARTAN POTASSIUM AND HYDROCHLOROTHIAZIDE [Concomitant]
     Indication: HYPERTENSION
  3. XALATAN [Concomitant]
     Indication: GLAUCOMA
     Dosage: FREQ:IN THE EVENING
  4. COSOPT [Concomitant]
     Indication: GLAUCOMA
     Dosage: FREQ:MORNING AND EVENING
  5. UTEPLEX [Concomitant]
     Indication: OSTEOARTHRITIS
     Dosage: TEXT:3 AMPULES
  6. DAFALGAN [Concomitant]
     Indication: OSTEOARTHRITIS

REACTIONS (1)
  - CEREBRAL ATROPHY [None]
